FAERS Safety Report 13233308 (Version 17)
Quarter: 2019Q1

REPORT INFORMATION
  Report Type: Spontaneous
  Country: GB (occurrence: GB)
  Receive Date: 20170215
  Receipt Date: 20190111
  Transmission Date: 20190417
  Serious: Yes (Hospitalization)
  Sender: FDA-Public Use
  Company Number: GB-009507513-1702GBR004677

PATIENT
  Age: 70 Year
  Sex: Female

DRUGS (11)
  1. FENTANYL. [Suspect]
     Active Substance: FENTANYL
     Dosage: 14 PATCHES OF 100 MICROGRAM ONCE
     Route: 062
     Dates: start: 201407, end: 201407
  2. ORAMORPH [Suspect]
     Active Substance: MORPHINE SULFATE
     Dosage: ADVISED TO TAKE NO MORE THAN 20 ML PER DAY
     Route: 048
     Dates: start: 2014
  3. FENTANYL. [Suspect]
     Active Substance: FENTANYL
     Dosage: PRESCRIBED AN EXTRA 50 MICROGRAM IN ADDITION TO HER 100 MICROGRAM FENTANYL PATCH
     Route: 062
     Dates: start: 201012
  4. MIRTAZAPINE. [Suspect]
     Active Substance: MIRTAZAPINE
     Dosage: TWO 45 MG TABLETS, ONCE
     Route: 048
     Dates: start: 201407, end: 201407
  5. FENTANYL. [Suspect]
     Active Substance: FENTANYL
     Dosage: REPEAT PRESCRIPTION OF 20 100 MICROGRAM PATCHES EVERY 2 MONTHS
     Route: 062
     Dates: start: 2011, end: 2012
  6. FENTANYL. [Suspect]
     Active Substance: FENTANYL
     Dosage: LOWER DOSE OF FENTANYL PATCHES
     Route: 062
  7. ORAMORPH [Suspect]
     Active Substance: MORPHINE SULFATE
     Indication: ANALGESIC THERAPY
     Dosage: UNK
     Route: 048
     Dates: start: 200905
  8. TRAMADOL HYDROCHLORIDE. [Suspect]
     Active Substance: TRAMADOL HYDROCHLORIDE
     Dosage: UNK
  9. MIRTAZAPINE. [Suspect]
     Active Substance: MIRTAZAPINE
     Dosage: 15 MG, DAILY
     Route: 048
     Dates: start: 201405
  10. FENTANYL. [Suspect]
     Active Substance: FENTANYL
     Indication: ANALGESIC THERAPY
     Dosage: RESTARTED 100 MICROGRAM PATCHES
     Route: 062
  11. FENTANYL. [Suspect]
     Active Substance: FENTANYL
     Dosage: 100 MICROGRAM DAILY
     Route: 062
     Dates: start: 2014

REACTIONS (2)
  - Intentional overdose [Unknown]
  - Hypersomnia [Recovered/Resolved]

NARRATIVE: CASE EVENT DATE: 201407
